FAERS Safety Report 7624967-3 (Version None)
Quarter: 2011Q3

REPORT INFORMATION
  Report Type: 
  Country: None (occurrence: None)
  Receive Date: 20110721
  Receipt Date: 20110719
  Transmission Date: 20111222
  Serious: Yes (Other)
  Sender: FDA-Public Use
  Company Number: US-PAR PHARMACEUTICAL, INC-2011SCPR003111

PATIENT

DRUGS (1)
  1. HYDROXYUREA [Suspect]
     Indication: SICKLE CELL ANAEMIA WITH CRISIS
     Dosage: UNK, UNKNOWN
     Route: 065

REACTIONS (1)
  - PALMAR-PLANTAR ERYTHRODYSAESTHESIA SYNDROME [None]
